FAERS Safety Report 6850436-4 (Version None)
Quarter: 2010Q3

REPORT INFORMATION
  Report Type: 
  Country: None (occurrence: None)
  Receive Date: 20100716
  Receipt Date: 20071017
  Transmission Date: 20110219
  Serious: No
  Sender: FDA-Public Use
  Company Number: US-PFIZER INC-2007088421

PATIENT
  Sex: Male
  Weight: 110.7 kg

DRUGS (8)
  1. CHANTIX [Suspect]
     Indication: SMOKING CESSATION THERAPY
     Dates: start: 20071001
  2. INFLUENZA VACCINE [Concomitant]
  3. PERCOCET [Concomitant]
  4. ACETYLSALICYLIC ACID [Concomitant]
  5. ZOCOR [Concomitant]
  6. CARDIOVASCULAR SYSTEM DRUGS [Concomitant]
  7. LISINOPRIL [Concomitant]
  8. ALL OTHER THERAPEUTIC PRODUCTS [Concomitant]

REACTIONS (1)
  - DRUG INEFFECTIVE [None]
